FAERS Safety Report 5941353-2 (Version None)
Quarter: 2008Q4

REPORT INFORMATION
  Report Type: 
  Country: None (occurrence: None)
  Receive Date: 20081103
  Receipt Date: 20081021
  Transmission Date: 20090506
  Serious: Yes (Other)
  Sender: FDA-Public Use
  Company Number: 1000001510

PATIENT
  Sex: Female

DRUGS (1)
  1. ESCITALOPRAM [Suspect]
     Indication: DEPRESSION
     Dosage: 20 MG (20 MG, 1 IN 1 D); ORAL
     Route: 048

REACTIONS (4)
  - CRYING [None]
  - DRUG INEFFECTIVE [None]
  - SELF-INJURIOUS IDEATION [None]
  - WEIGHT INCREASED [None]
